FAERS Safety Report 16475931 (Version 4)
Quarter: 2019Q4

REPORT INFORMATION
  Report Type: Report from Study
  Country: GB (occurrence: GB)
  Receive Date: 20190625
  Receipt Date: 20191111
  Transmission Date: 20200122
  Serious: Yes (Other)
  Sender: FDA-Public Use
  Company Number: PHHY2018GB062111

PATIENT
  Sex: Male

DRUGS (5)
  1. SERTRALINE [Concomitant]
     Active Substance: SERTRALINE HYDROCHLORIDE
     Indication: PRODUCT USED FOR UNKNOWN INDICATION
     Dosage: 50 MG, QD
     Route: 065
  2. SANDOSTATIN LAR DEPOT [Suspect]
     Active Substance: OCTREOTIDE ACETATE
     Indication: NEUROENDOCRINE TUMOUR
     Dosage: 30 MG, Q4W (EVERY 4 WEEKS)
     Route: 030
     Dates: start: 201604, end: 20180404
  3. PROPRANOLOL [Concomitant]
     Active Substance: PROPRANOLOL HYDROCHLORIDE
     Indication: PRODUCT USED FOR UNKNOWN INDICATION
     Dosage: UNK
     Route: 065
  4. SERTRALINE [Concomitant]
     Active Substance: SERTRALINE HYDROCHLORIDE
     Dosage: 100 MG, QD
     Route: 065
  5. SANDOSTATIN LAR DEPOT [Suspect]
     Active Substance: OCTREOTIDE ACETATE
     Dosage: 30 MG, QMO
     Route: 030

REACTIONS (32)
  - Abdominal pain [Not Recovered/Not Resolved]
  - Cystitis [Unknown]
  - Stress [Not Recovered/Not Resolved]
  - Micturition urgency [Recovering/Resolving]
  - Tinnitus [Not Recovered/Not Resolved]
  - Bacterial infection [Unknown]
  - Fatigue [Unknown]
  - Crohn^s disease [Unknown]
  - Red blood cell sedimentation rate increased [Unknown]
  - Headache [Not Recovered/Not Resolved]
  - Abdominal discomfort [Unknown]
  - Migraine [Unknown]
  - Chronic fatigue syndrome [Unknown]
  - Blood glucose decreased [Unknown]
  - Kidney infection [Unknown]
  - Food craving [Unknown]
  - Hepatic pain [Unknown]
  - Malaise [Not Recovered/Not Resolved]
  - Vertigo [Unknown]
  - Hypoaesthesia [Unknown]
  - Ear infection [Unknown]
  - Palpitations [Not Recovered/Not Resolved]
  - Lethargy [Unknown]
  - Carcinoid crisis [Recovered/Resolved]
  - Large intestinal ulcer [Unknown]
  - Gastrooesophageal reflux disease [Unknown]
  - Dizziness [Recovered/Resolved]
  - Flushing [Not Recovered/Not Resolved]
  - Pain [Unknown]
  - Dyspnoea [Unknown]
  - Dizziness [Not Recovered/Not Resolved]
  - Asthenia [Unknown]
